FAERS Safety Report 11129859 (Version 2)
Quarter: 2015Q2

REPORT INFORMATION
  Report Type: Report from Study
  Country: RU (occurrence: RU)
  Receive Date: 20150521
  Receipt Date: 20150526
  Transmission Date: 20150821
  Serious: Yes (Other)
  Sender: FDA-Public Use
  Company Number: RU-PFIZER INC-2015167727

PATIENT
  Age: 51 Year
  Sex: Male

DRUGS (1)
  1. DOSTINEX [Suspect]
     Active Substance: CABERGOLINE
     Indication: PROLACTINOMA
     Dosage: 2 MG, WEEKLY
     Route: 048
     Dates: start: 2009, end: 201501

REACTIONS (3)
  - Haemorrhage [Not Recovered/Not Resolved]
  - Blood testosterone decreased [Not Recovered/Not Resolved]
  - Pituitary cyst [Not Recovered/Not Resolved]

NARRATIVE: CASE EVENT DATE: 2014
